FAERS Safety Report 8869960 (Version 3)
Quarter: 2015Q3

REPORT INFORMATION
  Report Type: Spontaneous
  Country: US (occurrence: US)
  Receive Date: 20121026
  Receipt Date: 20150929
  Transmission Date: 20151125
  Serious: Yes (Other)
  Sender: FDA-Public Use
  Company Number: US-AMGEN-USASP2012044016

PATIENT
  Age: 57 Year
  Sex: Female
  Weight: 58.5 kg

DRUGS (1)
  1. ENBREL [Suspect]
     Active Substance: ETANERCEPT
     Indication: RHEUMATOID ARTHRITIS
     Dosage: 50 MG, QWK
     Route: 065
     Dates: start: 20000223

REACTIONS (22)
  - Rotator cuff repair [Unknown]
  - Fatigue [Unknown]
  - Dehydration [Unknown]
  - Joint dislocation [Unknown]
  - Limb operation [Unknown]
  - Constipation [Unknown]
  - Rash [Unknown]
  - Upper respiratory tract infection [Unknown]
  - Chromaturia [Unknown]
  - Heart rate increased [Unknown]
  - Injection site mass [Unknown]
  - Diarrhoea [Unknown]
  - Muscular weakness [Unknown]
  - Fall [Unknown]
  - Musculoskeletal pain [Unknown]
  - Medical device removal [Unknown]
  - Drug effect incomplete [Unknown]
  - Knee operation [Unknown]
  - Device issue [Unknown]
  - Headache [Unknown]
  - Foot operation [Unknown]
  - Injection site bruising [Unknown]

NARRATIVE: CASE EVENT DATE: 2012
